FAERS Safety Report 7389831-6 (Version None)
Quarter: 2011Q2

REPORT INFORMATION
  Report Type: 
  Country: None (occurrence: None)
  Receive Date: 20110401
  Receipt Date: 20110325
  Transmission Date: 20111010
  Serious: Yes (Life-Threatening, Hospitalization)
  Sender: FDA-Public Use
  Company Number: CH-AMGEN-CHECT2011003176

PATIENT
  Age: 42 Year
  Sex: Male

DRUGS (10)
  1. PEGFILGRASTIM [Suspect]
     Indication: HODGKIN'S DISEASE
     Dosage: 6 MG, QD
     Route: 058
     Dates: start: 20100903
  2. ETOPOSIDE [Suspect]
     Indication: HODGKIN'S DISEASE
     Dosage: 400 MG, QD
     Route: 042
     Dates: start: 20100831
  3. PROCARBAZINE [Suspect]
     Indication: HODGKIN'S DISEASE
     Dosage: 200 MG, QD
     Route: 042
     Dates: start: 20100831
  4. CYCLOPHOSPHAMIDE [Suspect]
     Indication: HODGKIN'S DISEASE
     Dosage: 2400 MG, QD
     Route: 042
     Dates: start: 20100831
  5. BLEOMYCIN [Suspect]
     Indication: HODGKIN'S DISEASE
     Dosage: 20 MG, QD
     Route: 042
     Dates: start: 20100907
  6. PREDNISONE [Suspect]
     Indication: HODGKIN'S DISEASE
     Dosage: 75 MG, QD
     Route: 048
     Dates: start: 20100831
  7. RITUXIMAB [Suspect]
     Indication: HODGKIN'S DISEASE
     Dosage: 700 MG, QD
     Route: 042
     Dates: start: 20101122
  8. SPIRICORT [Concomitant]
     Dosage: UNK
     Dates: end: 20110118
  9. DOXORUBICIN [Suspect]
     Indication: HODGKIN'S DISEASE
     Dosage: 70 MG, QD
     Route: 042
     Dates: start: 20100831
  10. VINCRISTINE [Suspect]
     Indication: HODGKIN'S DISEASE
     Dosage: 2 MG, QD
     Route: 042
     Dates: start: 20100907

REACTIONS (3)
  - FEBRILE NEUTROPENIA [None]
  - LEUKOPENIA [None]
  - INFECTION [None]
